FAERS Safety Report 13621777 (Version 1)
Quarter: 2017Q2

REPORT INFORMATION
  Report Type: Spontaneous
  Country: US (occurrence: US)
  Receive Date: 20170607
  Receipt Date: 20170607
  Transmission Date: 20170830
  Serious: No
  Sender: FDA-Public Use
  Company Number: US-ROCHE-1917379

PATIENT
  Sex: Female

DRUGS (4)
  1. LAMICTAL [Concomitant]
     Active Substance: LAMOTRIGINE
     Dosage: ONGOING: UNKNOWN
     Route: 065
  2. VIMPAT [Concomitant]
     Active Substance: LACOSAMIDE
     Dosage: ONGOING: UNKNOWN
     Route: 065
  3. KLONOPIN [Suspect]
     Active Substance: CLONAZEPAM
     Indication: PRODUCT USED FOR UNKNOWN INDICATION
     Dosage: ONGOING: UNKNOWN
     Route: 065
  4. KEPPRA [Concomitant]
     Active Substance: LEVETIRACETAM
     Dosage: ONGOING: UNKNOWN
     Route: 065

REACTIONS (1)
  - Vertigo [Unknown]
